FAERS Safety Report 5593086-2 (Version None)
Quarter: 2008Q1

REPORT INFORMATION
  Report Type: 
  Country: None (occurrence: None)
  Receive Date: 20080116
  Receipt Date: 20080107
  Transmission Date: 20080703
  Serious: Yes (Disabling)
  Sender: FDA-Public Use
  Company Number: FR-JNJFOC-20070704282

PATIENT
  Age: 54 Year
  Sex: Male

DRUGS (1)
  1. TAVANIC [Suspect]
     Indication: BRONCHITIS
     Route: 048

REACTIONS (4)
  - ARTHROPATHY [None]
  - FATIGUE [None]
  - TENDON RUPTURE [None]
  - TENDONITIS [None]
